FAERS Safety Report 5699891-6 (Version None)
Quarter: 2008Q2

REPORT INFORMATION
  Report Type: 
  Country: None (occurrence: None)
  Receive Date: 20080410
  Receipt Date: 20080403
  Transmission Date: 20081010
  Serious: Yes (Hospitalization)
  Sender: FDA-Public Use
  Company Number: US-AVENTIS-200812875GDDC

PATIENT
  Age: 76 Year
  Sex: Male
  Weight: 73.5 kg

DRUGS (19)
  1. DOCETAXEL [Suspect]
     Indication: PROSTATE CANCER
     Route: 042
     Dates: start: 20071213
  2. MONOCLONAL ANTIBODIES [Suspect]
     Indication: PROSTATE CANCER
     Route: 042
     Dates: start: 20071213
  3. CELEBREX [Concomitant]
     Dosage: DOSE: UNK
     Route: 048
  4. COMPAZINE [Concomitant]
     Dosage: DOSE: UNK
     Route: 048
     Dates: start: 20071206
  5. DECADRON [Concomitant]
     Dosage: DOSE: UNK
     Route: 048
     Dates: start: 20071206
  6. DETROL [Concomitant]
     Dosage: DOSE: UNK
     Route: 048
  7. EFFEXOR [Concomitant]
     Dosage: DOSE: UNK
     Route: 048
  8. SERTACONAZOLE NITRATE [Concomitant]
     Dosage: DOSE: UNK
  9. TAMSULOSIN HCL [Concomitant]
     Dosage: DOSE: UNK
     Route: 048
  10. FLONASE [Concomitant]
     Dosage: DOSE: UNK
  11. LISINOPRIL [Concomitant]
     Dosage: DOSE: UNK
     Route: 048
  12. LUPRON [Concomitant]
     Dosage: DOSE: UNK
     Route: 030
  13. PREDNISONE [Concomitant]
     Dosage: DOSE: UNK
     Route: 048
     Dates: start: 20071213
  14. PRILOSEC [Concomitant]
     Dosage: DOSE: UNK
     Route: 048
  15. PROSCAR [Concomitant]
     Dosage: DOSE: UNK
     Route: 048
  16. DESYREL [Concomitant]
     Dosage: DOSE: UNK
     Route: 048
  17. VICODIN [Concomitant]
     Dosage: DOSE: UNK
     Route: 048
  18. ZOFRAN [Concomitant]
     Dosage: DOSE: UNK
     Route: 048
  19. ZOMETA [Concomitant]
     Dosage: DOSE: UNK
     Route: 042
     Dates: start: 20071030

REACTIONS (3)
  - FATIGUE [None]
  - MENTAL STATUS CHANGES [None]
  - NEUTROPENIA [None]
